FAERS Safety Report 9249800 (Version 4)
Quarter: 2013Q3

REPORT INFORMATION
  Report Type: Spontaneous
  Country: US (occurrence: US)
  Receive Date: 20130423
  Receipt Date: 20130819
  Transmission Date: 20140515
  Serious: Yes (Hospitalization)
  Sender: FDA-Public Use
  Company Number: US-GILEAD-2013-0073366

PATIENT
  Age: 65 Year
  Sex: Female

DRUGS (2)
  1. LETAIRIS [Suspect]
     Indication: PRODUCT USED FOR UNKNOWN INDICATION
     Dosage: 10 MG, QD
     Dates: start: 20101106
  2. TYVASO [Concomitant]

REACTIONS (9)
  - Myocardial infarction [Unknown]
  - Cardiac valve disease [Unknown]
  - Heart rate increased [Unknown]
  - Syncope [Unknown]
  - Fluid retention [Unknown]
  - Cough [Unknown]
  - Fall [Unknown]
  - Oropharyngeal pain [Unknown]
  - Dizziness [Unknown]
